FAERS Safety Report 4503131-0 (Version None)
Quarter: 2004Q4

REPORT INFORMATION
  Report Type: 
  Country: None (occurrence: None)
  Receive Date: 20041117
  Receipt Date: 20030915
  Transmission Date: 20050328
  Serious: No
  Sender: FDA-Public Use
  Company Number: US-BRISTOL-MYERS SQUIBB COMPANY-12383626

PATIENT
  Age: 39 Year
  Sex: Male

DRUGS (3)
  1. VEPESID [Suspect]
     Indication: TESTIS CANCER
     Dosage: IN 500 ML OF NORMAL SALINE
     Route: 042
     Dates: start: 20030915, end: 20030915
  2. DECADRON [Concomitant]
     Indication: PREMEDICATION
     Route: 042
     Dates: start: 20030915, end: 20030915
  3. KYTRIL [Concomitant]
     Indication: PREMEDICATION
     Route: 042
     Dates: start: 20030915, end: 20030915

REACTIONS (4)
  - CHEST DISCOMFORT [None]
  - DYSPNOEA [None]
  - ERYTHEMA [None]
  - WHEEZING [None]
